FAERS Safety Report 10306646 (Version 1)
Quarter: 2014Q3

REPORT INFORMATION
  Report Type: Spontaneous
  Country: US (occurrence: US)
  Receive Date: 20140715
  Receipt Date: 20140715
  Transmission Date: 20150326
  Serious: Yes (Other)
  Sender: FDA-Public Use
  Company Number: US-PFIZER INC-2014195770

PATIENT
  Sex: Male

DRUGS (1)
  1. PRISTIQ EXTENDED RELEASE [Suspect]
     Active Substance: DESVENLAFAXINE SUCCINATE
     Indication: DEPRESSION
     Dosage: UNK

REACTIONS (8)
  - Depression [Unknown]
  - Dry mouth [Unknown]
  - Tremor [Unknown]
  - Dizziness [Unknown]
  - Headache [Unknown]
  - Activities of daily living impaired [Unknown]
  - Somnolence [Unknown]
  - Nausea [Unknown]
